FAERS Safety Report 19144757 (Version 1)
Quarter: 2021Q2

REPORT INFORMATION
  Report Type: Spontaneous
  Country: US (occurrence: US)
  Receive Date: 20210415
  Receipt Date: 20210415
  Transmission Date: 20210717
  Serious: Yes (Other)
  Sender: FDA-Public Use
  Company Number: None

PATIENT
  Age: 76 Year
  Sex: Female
  Weight: 47.25 kg

DRUGS (25)
  1. VITAMIN C [Concomitant]
     Active Substance: ASCORBIC ACID
  2. DHEA [Concomitant]
     Active Substance: PRASTERONE
  3. NALTREXONE LOW DOSE [Concomitant]
  4. VITAMINS A [Concomitant]
  5. VITAMIN B [Concomitant]
     Active Substance: VITAMIN B
  6. LECITHIN [Concomitant]
     Active Substance: LECITHIN
  7. METHYL FOLATE [Concomitant]
     Active Substance: LEVOMEFOLATE CALCIUM
  8. CHLORELLA [Concomitant]
     Active Substance: DIETARY SUPPLEMENT
  9. DHA?500 [Concomitant]
  10. L?LYSINE [Concomitant]
     Active Substance: LYSINE
  11. ALPHA LIPOIC ACID [Concomitant]
     Active Substance: .ALPHA.-LIPOIC ACID
  12. GUT ALIVE [Concomitant]
  13. NP THYROID [Concomitant]
     Active Substance: LEVOTHYROXINE\LIOTHYRONINE
  14. ZINC. [Concomitant]
     Active Substance: ZINC
  15. RESVERATROL [Concomitant]
     Active Substance: DIETARY SUPPLEMENT\RESVERATROL
  16. PECTIPURE [Concomitant]
  17. GILADIN [Concomitant]
  18. PREDNISOLONE ACETATE. [Suspect]
     Active Substance: PREDNISOLONE ACETATE
     Indication: GLAUCOMA
     Dosage: ?          QUANTITY:10 DROP(S);?
     Route: 047
     Dates: start: 20210323, end: 20210414
  19. VITAMIN B12 [Concomitant]
     Active Substance: CYANOCOBALAMIN
  20. D?MANNOSE [Concomitant]
  21. ESSENTIAL ENZYMES [Concomitant]
  22. VITAMIN D3 [Concomitant]
     Active Substance: CHOLECALCIFEROL
  23. CHROMIUM PICOLINATE [Concomitant]
     Active Substance: CHROMIUM PICOLINATE
  24. NAC [Concomitant]
  25. BIOTIN [Concomitant]
     Active Substance: BIOTIN

REACTIONS (4)
  - Retching [None]
  - Ocular discomfort [None]
  - Headache [None]
  - Vomiting [None]

NARRATIVE: CASE EVENT DATE: 20210414
